FAERS Safety Report 9156733 (Version 2)
Quarter: 2013Q2

REPORT INFORMATION
  Report Type: Spontaneous
  Country: MX (occurrence: MX)
  Receive Date: 20130312
  Receipt Date: 20130423
  Transmission Date: 20140414
  Serious: Yes (Hospitalization, Other)
  Sender: FDA-Public Use
  Company Number: MX-ELI_LILLY_AND_COMPANY-MX201303000891

PATIENT
  Age: 65 Year
  Sex: Female

DRUGS (4)
  1. ZYPREXA [Suspect]
     Dosage: UNK, UNKNOWN
  2. VENLAFAXINE [Concomitant]
  3. TAFIL [Concomitant]
  4. ENALAPRIL [Concomitant]
     Indication: HYPERTENSION

REACTIONS (1)
  - Loss of consciousness [Recovered/Resolved]
